FAERS Safety Report 25470461 (Version 1)
Quarter: 2025Q2

REPORT INFORMATION
  Report Type: Report from Study
  Country: US (occurrence: US)
  Receive Date: 20250624
  Receipt Date: 20250624
  Transmission Date: 20250717
  Serious: Yes (Other)
  Sender: ABBVIE
  Company Number: US-ABBVIE-6333187

PATIENT
  Age: 63 Year
  Sex: Male

DRUGS (1)
  1. SKYRIZI [Suspect]
     Active Substance: RISANKIZUMAB-RZAA
     Indication: Psoriasis
     Route: 058
     Dates: start: 20250507

REACTIONS (4)
  - Postoperative wound infection [Recovering/Resolving]
  - Incision site erythema [Recovering/Resolving]
  - Feeling hot [Recovering/Resolving]
  - Incision site swelling [Recovering/Resolving]

NARRATIVE: CASE EVENT DATE: 20250602
